FAERS Safety Report 6252128-1 (Version None)
Quarter: 2009Q2

REPORT INFORMATION
  Report Type: 
  Country: None (occurrence: None)
  Receive Date: 20090630
  Receipt Date: 20080403
  Transmission Date: 20091009
  Serious: Yes (Hospitalization)
  Sender: FDA-Public Use
  Company Number: US-ROCHE-639126

PATIENT
  Sex: Male

DRUGS (15)
  1. ENFUVIRTIDE [Suspect]
     Route: 065
     Dates: start: 20030717, end: 20060801
  2. KALETRA [Concomitant]
     Dates: start: 20020411, end: 20071115
  3. INVIRASE [Concomitant]
     Dates: start: 20030717, end: 20070924
  4. VIDEX EC [Concomitant]
     Dates: start: 20030717
  5. VIDEX EC [Concomitant]
     Dates: start: 20031211, end: 20070924
  6. ISENTRESS [Concomitant]
     Dates: start: 20070924, end: 20080814
  7. NORVIR [Concomitant]
     Dates: start: 20070924, end: 20080814
  8. PREZISTA [Concomitant]
     Dates: start: 20070924, end: 20080814
  9. TRUVADA [Concomitant]
     Dates: start: 20070924, end: 20080814
  10. DAPSONE [Concomitant]
     Dates: start: 20010529, end: 20080814
  11. DIFLUCAN [Concomitant]
     Dates: start: 20030101, end: 20050801
  12. DIFLUCAN [Concomitant]
     Dosage: ONCE
     Dates: start: 20050913, end: 20050913
  13. DIFLUCAN [Concomitant]
     Dates: start: 20050914, end: 20051020
  14. SPORANOX [Concomitant]
     Dates: start: 20051020, end: 20060101
  15. SPORANOX [Concomitant]
     Dates: start: 20050101, end: 20050101

REACTIONS (1)
  - HUMERUS FRACTURE [None]
